FAERS Safety Report 8985678 (Version 1)
Quarter: 2012Q4

REPORT INFORMATION
  Report Type: 
  Country: AT (occurrence: AT)
  Receive Date: 20121226
  Receipt Date: 20121226
  Transmission Date: 20130627
  Serious: Yes (Other)
  Sender: FDA-Public Use
  Company Number: AT-B.I. PHARMACEUTICALS,INC./RIDGEFIELD-2012-AP-01143AP

PATIENT
  Age: 40 Year
  Sex: Female
  Weight: 75 kg

DRUGS (2)
  1. PRADAXA [Suspect]
     Indication: ATRIAL SEPTAL DEFECT
     Dosage: 300 mg
     Route: 048
     Dates: start: 20121119, end: 20121217
  2. PRADAXA [Suspect]
     Indication: CEREBROVASCULAR ACCIDENT

REACTIONS (3)
  - Rash pruritic [Not Recovered/Not Resolved]
  - Rash pustular [Not Recovered/Not Resolved]
  - Dyspepsia [Not Recovered/Not Resolved]
